FAERS Safety Report 5846250-9 (Version None)
Quarter: 2008Q3

REPORT INFORMATION
  Report Type: 
  Country: None (occurrence: None)
  Receive Date: 20080813
  Receipt Date: 20080725
  Transmission Date: 20090109
  Serious: Yes (Other)
  Sender: FDA-Public Use
  Company Number: 2008SP016193

PATIENT
  Age: 43 Year
  Sex: Male

DRUGS (2)
  1. RIBAVIRIN [Suspect]
     Indication: HEPATITIS C
     Dosage: ; PO
     Route: 048
  2. INTERFERON ALFA [Suspect]
     Indication: HEPATITIS C

REACTIONS (1)
  - CEREBRAL ISCHAEMIA [None]
